FAERS Safety Report 6244259-7 (Version None)
Quarter: 2009Q2

REPORT INFORMATION
  Report Type: 
  Country: None (occurrence: None)
  Receive Date: 20090623
  Receipt Date: 20090623
  Transmission Date: 20091009
  Serious: No
  Sender: FDA-Public Use
  Company Number: None

PATIENT
  Sex: Female
  Weight: 122 kg

DRUGS (16)
  1. CIMZIA [Suspect]
     Dosage: SC
     Route: 058
     Dates: start: 20081111, end: 20090408
  2. METHOTREXATE [Concomitant]
  3. PRAVASTATIN SODIUM [Concomitant]
  4. METFORMIN HCL [Concomitant]
  5. FOLIC ACID [Concomitant]
  6. GLIMEPIRIDE [Concomitant]
  7. LISINOPRIL [Concomitant]
  8. PREMPRO [Concomitant]
  9. MELOXICAM [Concomitant]
  10. DARVOCET /00220901 [Concomitant]
  11. LORTAB [Concomitant]
  12. CYANOCOBALAMIN [Concomitant]
  13. DIAZEPAM [Concomitant]
  14. ESCITALOPRAM OXALATE [Concomitant]
  15. INSULIN [Concomitant]
  16. PREDNISONE [Concomitant]

REACTIONS (6)
  - DIABETES MELLITUS INADEQUATE CONTROL [None]
  - HEADACHE [None]
  - KIDNEY INFECTION [None]
  - LUPUS-LIKE SYNDROME [None]
  - PERICARDIAL EFFUSION [None]
  - URINARY TRACT INFECTION BACTERIAL [None]
